FAERS Safety Report 17258277 (Version 2)
Quarter: 2020Q1

REPORT INFORMATION
  Report Type: Spontaneous
  Country: CA (occurrence: CA)
  Receive Date: 20200110
  Receipt Date: 20200319
  Transmission Date: 20200409
  Serious: Yes (Other)
  Sender: FDA-Public Use
  Company Number: CA-PFIZER INC-2019059598

PATIENT
  Age: 81 Year
  Sex: Female

DRUGS (6)
  1. METHOTREXATE. [Concomitant]
     Active Substance: METHOTREXATE
     Dosage: UNK (UNKNOWN LOWERED DOSE)
     Dates: start: 2019
  2. METHOTREXATE. [Concomitant]
     Active Substance: METHOTREXATE
     Dosage: 22.5 MG, UNK
     Route: 065
     Dates: start: 2015, end: 2019
  3. WINPRED [Concomitant]
     Active Substance: PREDNISONE
     Dosage: UNK
     Route: 065
  4. HYDROXYCHLOROQUINE [Concomitant]
     Active Substance: HYDROXYCHLOROQUINE
     Dosage: UNK
     Route: 065
  5. FOLIC ACID. [Concomitant]
     Active Substance: FOLIC ACID
     Dosage: UNK
     Route: 065
  6. XELJANZ [Suspect]
     Active Substance: TOFACITINIB CITRATE
     Indication: RHEUMATOID ARTHRITIS
     Dosage: 5 MG, 2X/DAY
     Route: 048
     Dates: start: 20190120

REACTIONS (8)
  - Therapeutic product effect incomplete [Unknown]
  - Anxiety [Unknown]
  - Alopecia [Recovering/Resolving]
  - Back pain [Unknown]
  - Onychoclasis [Recovering/Resolving]
  - Dyspnoea [Unknown]
  - Intestinal obstruction [Unknown]
  - Weight increased [Unknown]

NARRATIVE: CASE EVENT DATE: 201907
